FAERS Safety Report 4409417-2 (Version None)
Quarter: 2004Q3

REPORT INFORMATION
  Report Type: 
  Country: None (occurrence: None)
  Receive Date: 20040727
  Receipt Date: 20040727
  Transmission Date: 20050211
  Serious: Yes (Hospitalization, Other)
  Sender: FDA-Public Use
  Company Number: None

PATIENT
  Age: 90 Year
  Sex: Female

DRUGS (4)
  1. COUMADIN [Suspect]
     Indication: ANTICOAGULANT THERAPY
     Dosage: 4 MG PO DAILY
     Route: 048
     Dates: start: 20030801
  2. MAG OX [Concomitant]
  3. ENALAPRIL MALEATE [Concomitant]
  4. TYLENOL [Concomitant]

REACTIONS (4)
  - AORTIC ANEURYSM [None]
  - COAGULOPATHY [None]
  - INTERNATIONAL NORMALISED RATIO INCREASED [None]
  - PROTHROMBIN TIME PROLONGED [None]
